FAERS Safety Report 5964230-X (Version None)
Quarter: 2008Q4

REPORT INFORMATION
  Report Type: 
  Country: None (occurrence: None)
  Receive Date: 20081124
  Receipt Date: 20081112
  Transmission Date: 20090506
  Serious: Yes (Other)
  Sender: FDA-Public Use
  Company Number: GB-PFIZER INC-2008095985

PATIENT
  Sex: Male

DRUGS (1)
  1. CABARGOLINE [Suspect]
     Dates: end: 20060101

REACTIONS (5)
  - CARDIAC DISORDER [None]
  - COUGH [None]
  - FIBROSIS [None]
  - PULMONARY FIBROSIS [None]
  - RED BLOOD CELL SEDIMENTATION RATE INCREASED [None]
